FAERS Safety Report 6459655-2 (Version None)
Quarter: 2009Q4

REPORT INFORMATION
  Report Type: 
  Country: None (occurrence: None)
  Receive Date: 20091128
  Receipt Date: 20091116
  Transmission Date: 20100525
  Serious: Yes (Hospitalization, Other)
  Sender: FDA-Public Use
  Company Number: DE-ELI_LILLY_AND_COMPANY-DE200911004120

PATIENT
  Sex: Female

DRUGS (7)
  1. BYETTA [Suspect]
     Indication: TYPE 2 DIABETES MELLITUS
     Dosage: UNK, UNKNOWN
     Route: 058
  2. METFORMIN HCL [Concomitant]
     Dosage: 1000 D/F, UNKNOWN
     Route: 048
  3. RAMIPRIL [Concomitant]
     Dosage: 5 D/F, UNKNOWN
     Route: 048
  4. PRAVASTATIN [Concomitant]
     Dosage: 40 D/F, UNKNOWN
     Route: 048
  5. CLARITHROMYCIN [Concomitant]
     Dosage: 500 D/F, UNKNOWN
     Route: 048
  6. PARKODEIN [Concomitant]
     Dosage: 20 D/F, AS NEEDED
     Route: 048
  7. INSULIN [Concomitant]
     Indication: TYPE 2 DIABETES MELLITUS
     Dosage: UNK, UNKNOWN
     Route: 065

REACTIONS (12)
  - ABDOMINAL DISCOMFORT [None]
  - ALVEOLITIS ALLERGIC [None]
  - BACTERIAL INFECTION [None]
  - BRONCHIOLITIS [None]
  - BRONCHOPNEUMONIA [None]
  - INSULIN-REQUIRING TYPE 2 DIABETES MELLITUS [None]
  - NAUSEA [None]
  - OFF LABEL USE [None]
  - POLLAKIURIA [None]
  - RENAL PAIN [None]
  - RESPIRATORY FAILURE [None]
  - WEIGHT DECREASED [None]
